FAERS Safety Report 11926491 (Version 2)
Quarter: 2016Q2

REPORT INFORMATION
  Report Type: Spontaneous
  Country: US (occurrence: US)
  Receive Date: 20160119
  Receipt Date: 20160606
  Transmission Date: 20160815
  Serious: No
  Sender: FDA-Public Use
  Company Number: US-ALEXION-A201600108

PATIENT
  Sex: Female

DRUGS (1)
  1. STRENSIQ [Suspect]
     Active Substance: ASFOTASE ALFA
     Indication: PRODUCT USED FOR UNKNOWN INDICATION
     Dosage: UNK
     Route: 058

REACTIONS (7)
  - Pain in extremity [Unknown]
  - Vomiting [Unknown]
  - Condition aggravated [Unknown]
  - Chest pain [Unknown]
  - Chills [Recovered/Resolved]
  - Musculoskeletal chest pain [Unknown]
  - Tremor [Unknown]

NARRATIVE: CASE EVENT DATE: 201601
